FAERS Safety Report 13098648 (Version 1)
Quarter: 2017Q1

REPORT INFORMATION
  Report Type: Report from Study
  Country: US (occurrence: US)
  Receive Date: 20170109
  Receipt Date: 20170109
  Transmission Date: 20170428
  Serious: No
  Sender: FDA-Public Use
  Company Number: PHEH2014US023304

PATIENT
  Age: 1 Year
  Sex: Female

DRUGS (2)
  1. AFINITOR [Suspect]
     Active Substance: EVEROLIMUS
     Indication: ASTROCYTOMA, LOW GRADE
     Dosage: 3 MG, QD
     Route: 048
     Dates: start: 20140626
  2. PENTAMIDINE [Concomitant]
     Active Substance: PENTAMIDINE
     Indication: PRODUCT USED FOR UNKNOWN INDICATION
     Dosage: UNK UNK, QMO
     Route: 065

REACTIONS (9)
  - Respiratory syncytial virus infection [Unknown]
  - Headache [Unknown]
  - Constipation [Unknown]
  - Pruritus [Unknown]
  - Neutrophil count decreased [Unknown]
  - Ear infection [Unknown]
  - Dry skin [Unknown]
  - Oedema peripheral [Unknown]
  - Cough [Unknown]

NARRATIVE: CASE EVENT DATE: 20141119
